FAERS Safety Report 21479179 (Version 1)
Quarter: 2022Q4

REPORT INFORMATION
  Report Type: Spontaneous
  Country: US (occurrence: US)
  Receive Date: 20221019
  Receipt Date: 20221019
  Transmission Date: 20230113
  Serious: No
  Sender: FDA-Public Use
  Company Number: US-ALLERGAN-2213285US

PATIENT
  Sex: Female

DRUGS (3)
  1. ALPHAGAN P [Suspect]
     Active Substance: BRIMONIDINE TARTRATE
     Indication: Glaucoma
     Dosage: UNK
  2. XELPROS [Concomitant]
     Active Substance: LATANOPROST
     Indication: Glaucoma
  3. other glaucoma eye drops [Concomitant]
     Indication: Glaucoma

REACTIONS (1)
  - Drug ineffective [Unknown]
